FAERS Safety Report 4625917-4 (Version None)
Quarter: 2005Q1

REPORT INFORMATION
  Report Type: 
  Country: None (occurrence: None)
  Receive Date: 20050330
  Receipt Date: 20050318
  Transmission Date: 20050727
  Serious: No
  Sender: FDA-Public Use
  Company Number: 2005048758

PATIENT
  Sex: Female

DRUGS (1)
  1. PROVERA [Suspect]
     Indication: HORMONE REPLACEMENT THERAPY
     Dates: start: 19980121, end: 20020715

REACTIONS (1)
  - BREAST CANCER FEMALE [None]
